FAERS Safety Report 8615037-6 (Version None)
Quarter: 2012Q3

REPORT INFORMATION
  Report Type: 
  Country: None (occurrence: None)
  Receive Date: 20120823
  Receipt Date: 20120820
  Transmission Date: 20120928
  Serious: Yes (Life-Threatening, Hospitalization, Other)
  Sender: FDA-Public Use
  Company Number: JP-PFIZER INC-2012141522

PATIENT
  Age: 38 Year
  Sex: Male
  Weight: 43 kg

DRUGS (10)
  1. HYDROCORTONE [Concomitant]
     Dosage: 100 MG PER ADMINISTRATION
     Route: 041
  2. MIDAZOLAM [Concomitant]
     Dosage: UNK
     Route: 042
  3. NOREPINEPHRINE BITARTRATE [Concomitant]
     Dosage: UNK
     Route: 041
  4. ZITHROMAX [Suspect]
     Indication: PNEUMONIA
     Dosage: 500 MG, 1X/DAY
     Route: 041
     Dates: start: 20120510, end: 20120510
  5. CEFEPIME DIHYDROCHLORIDE HYDRATE [Concomitant]
     Dosage: 2 G PER ADMINISTRATION
     Route: 041
  6. LACTEC [Concomitant]
     Dosage: UNK
     Route: 041
  7. ISOTONIC SODIUM CHLORIDE [Concomitant]
     Dosage: 50 ML PER ADMINISTRATION
     Route: 041
  8. PLASMA PROTEIN FRACTION (HUMAN) [Concomitant]
     Dosage: 1000 ML PER ADMINISTRATION
     Route: 042
  9. FENTANYL [Concomitant]
     Dosage: UNK
     Route: 042
  10. HUMULIN R [Concomitant]
     Dosage: UNK
     Route: 042

REACTIONS (3)
  - VENTRICULAR FIBRILLATION [None]
  - VENTRICULAR TACHYCARDIA [None]
  - ELECTROCARDIOGRAM QT PROLONGED [None]
